FAERS Safety Report 18376869 (Version 2)
Quarter: 2020Q4

REPORT INFORMATION
  Report Type: Spontaneous
  Country: JP (occurrence: JP)
  Receive Date: 20201013
  Receipt Date: 20201229
  Transmission Date: 20210114
  Serious: Yes (Death, Hospitalization)
  Sender: FDA-Public Use
  Company Number: JP-JNJFOC-20201000034

PATIENT
  Age: 3 Month
  Sex: Female

DRUGS (1)
  1. TRACLEER [Suspect]
     Active Substance: BOSENTAN
     Indication: PULMONARY ARTERIAL HYPERTENSION
     Dosage: DOSE UNKNOWN
     Route: 048

REACTIONS (7)
  - Pulmonary hypertension [Fatal]
  - Pulmonary oedema [Fatal]
  - Product use issue [Unknown]
  - Pulmonary alveolar haemorrhage [Fatal]
  - Interstitial lung disease [Fatal]
  - Bronchitis [Unknown]
  - Off label use [Unknown]
